FAERS Safety Report 9655896 (Version 4)
Quarter: 2015Q2

REPORT INFORMATION
  Report Type: Report from Study
  Country: CA (occurrence: CA)
  Receive Date: 20131030
  Receipt Date: 20150427
  Transmission Date: 20150821
  Serious: Yes (Other)
  Sender: FDA-Public Use
  Company Number: CA-ROCHE-1296681

PATIENT
  Age: 68 Year
  Sex: Female
  Weight: 77 kg

DRUGS (12)
  1. ACTEMRA [Suspect]
     Active Substance: TOCILIZUMAB
     Route: 042
     Dates: start: 20131030
  2. ACTEMRA [Suspect]
     Active Substance: TOCILIZUMAB
     Route: 042
     Dates: start: 20140908
  3. ACTEMRA [Suspect]
     Active Substance: TOCILIZUMAB
     Indication: RHEUMATOID ARTHRITIS
     Route: 042
     Dates: start: 20130912
  4. ACTEMRA [Suspect]
     Active Substance: TOCILIZUMAB
     Route: 042
     Dates: start: 20150422
  5. DETROL [Concomitant]
     Active Substance: TOLTERODINE TARTRATE
  6. TECTA [Concomitant]
     Active Substance: PANTOPRAZOLE MAGNESIUM
  7. MIRTAZAPINE. [Concomitant]
     Active Substance: MIRTAZAPINE
  8. VITAMIN B50 [Concomitant]
  9. ACTEMRA [Suspect]
     Active Substance: TOCILIZUMAB
     Route: 042
     Dates: start: 20141103
  10. CLONAZEPAM. [Concomitant]
     Active Substance: CLONAZEPAM
  11. ARAVA [Concomitant]
     Active Substance: LEFLUNOMIDE
     Route: 065
  12. ACTEMRA [Suspect]
     Active Substance: TOCILIZUMAB
     Route: 042
     Dates: start: 20141229

REACTIONS (5)
  - Weight decreased [Unknown]
  - Cellulitis [Recovered/Resolved]
  - Cough [Unknown]
  - Foot fracture [Unknown]
  - Carpal tunnel syndrome [Unknown]

NARRATIVE: CASE EVENT DATE: 20131015
